FAERS Safety Report 4694979-0 (Version None)
Quarter: 2005Q2

REPORT INFORMATION
  Report Type: 
  Country: None (occurrence: None)
  Receive Date: 20050620
  Receipt Date: 20050615
  Transmission Date: 20051028
  Serious: Yes (Hospitalization)
  Sender: FDA-Public Use
  Company Number: DE-ABBOTT-05P-062-0303450-00

PATIENT
  Sex: Female
  Weight: 45 kg

DRUGS (3)
  1. RYTHMOL [Suspect]
     Indication: SUICIDE ATTEMPT
     Route: 048
     Dates: start: 20050615, end: 20050615
  2. ENALAPRIL MALEATE [Suspect]
     Indication: SUICIDE ATTEMPT
     Dosage: COMP 10/25
     Route: 048
     Dates: start: 20050615, end: 20050615
  3. FUROSEMIDE [Suspect]
     Indication: SUICIDE ATTEMPT
     Route: 048
     Dates: start: 20050615, end: 20050615

REACTIONS (5)
  - BRADYCARDIA [None]
  - GASTROINTESTINAL MOTILITY DISORDER [None]
  - INTENTIONAL MISUSE [None]
  - SUICIDE ATTEMPT [None]
  - VOMITING [None]
